FAERS Safety Report 24773673 (Version 3)
Quarter: 2025Q2

REPORT INFORMATION
  Report Type: Report from Study
  Country: GB (occurrence: GB)
  Receive Date: 20241225
  Receipt Date: 20250516
  Transmission Date: 20250716
  Serious: Yes (Hospitalization)
  Sender: NOVARTIS
  Company Number: GB-002147023-NVSC2024GB242291

PATIENT
  Sex: Female

DRUGS (1)
  1. COSENTYX [Suspect]
     Active Substance: SECUKINUMAB
     Indication: Psoriatic arthropathy
     Dosage: 300 MG, QMO
     Route: 058
     Dates: start: 201911

REACTIONS (11)
  - Cellulitis [Not Recovered/Not Resolved]
  - Peripheral swelling [Not Recovered/Not Resolved]
  - Enterobacter infection [Unknown]
  - Escherichia infection [Unknown]
  - Malaise [Unknown]
  - Dehydration [Unknown]
  - Coagulation test abnormal [Unknown]
  - Fibrin D dimer increased [Unknown]
  - Psoriasis [Unknown]
  - Disease recurrence [Unknown]
  - Inappropriate schedule of product administration [Unknown]
